FAERS Safety Report 5538293-X (Version None)
Quarter: 2007Q4

REPORT INFORMATION
  Report Type: 
  Country: None (occurrence: None)
  Receive Date: 20071205
  Receipt Date: 20071128
  Transmission Date: 20080405
  Serious: Yes (Hospitalization)
  Sender: FDA-Public Use
  Company Number: 163-21880-07111574

PATIENT
  Age: 83 Year
  Sex: Male

DRUGS (2)
  1. REVLIMID [Suspect]
     Indication: MULTIPLE MYELOMA
     Dosage: 25 MG, 1 IN 1 D, ORAL; 6.4286 MG, 3 IN 1 WK, ORAL
     Route: 048
     Dates: start: 20071116, end: 20071101
  2. REVLIMID [Suspect]
     Indication: MULTIPLE MYELOMA
     Dosage: 25 MG, 1 IN 1 D, ORAL; 6.4286 MG, 3 IN 1 WK, ORAL
     Route: 048
     Dates: start: 20071128

REACTIONS (2)
  - BLOOD CALCIUM INCREASED [None]
  - DIALYSIS [None]
